FAERS Safety Report 5451855-3 (Version None)
Quarter: 2007Q3

REPORT INFORMATION
  Report Type: 
  Country: None (occurrence: None)
  Receive Date: 20070806
  Receipt Date: 20070227
  Transmission Date: 20080115
  Serious: Yes (Death)
  Sender: FDA-Public Use
  Company Number: 15773

PATIENT
  Age: 59 Year
  Sex: Female
  Weight: 71.4 kg

DRUGS (1)
  1. CYTARABINE [Suspect]
     Indication: ACUTE MYELOID LEUKAEMIA
     Dosage: 2745 MG BID; IV
     Route: 042
     Dates: start: 20070202, end: 20070204

REACTIONS (1)
  - NEUROTOXICITY [None]
